FAERS Safety Report 9540531 (Version 3)
Quarter: 2013Q4

REPORT INFORMATION
  Report Type: Spontaneous
  Country: AU (occurrence: AU)
  Receive Date: 20130920
  Receipt Date: 20131008
  Transmission Date: 20140711
  Serious: Yes (Other)
  Sender: FDA-Public Use
  Company Number: AU-PFIZER INC-2013257397

PATIENT
  Age: 88 Year
  Sex: Male

DRUGS (7)
  1. DILANTIN [Suspect]
     Dosage: 300 MG, 1X/DAY
     Dates: start: 20121024
  2. LEVITAM 250 [Suspect]
     Dosage: 500 MG, 1X/DAY
     Dates: start: 20121024, end: 20130102
  3. BENZYLPENICILLIN [Concomitant]
     Dosage: UNK
  4. DUODART [Concomitant]
     Dosage: UNK
  5. LANOXIN [Concomitant]
     Dosage: UNK
  6. ACICLOVIR [Concomitant]
     Dosage: UNK
  7. MOXIFLOXACIN [Concomitant]
     Dosage: UNK

REACTIONS (6)
  - Subdural haemorrhage [Unknown]
  - Confusional state [Recovered/Resolved]
  - Tremor [Recovered/Resolved]
  - Fatigue [Not Recovered/Not Resolved]
  - Vision blurred [Recovered/Resolved]
  - Dizziness [Not Recovered/Not Resolved]
